FAERS Safety Report 5344211-X (Version None)
Quarter: 2007Q2

REPORT INFORMATION
  Report Type: 
  Country: None (occurrence: None)
  Receive Date: 20070531
  Receipt Date: 20070531
  Transmission Date: 20071010
  Serious: Yes (Hospitalization)
  Sender: FDA-Public Use
  Company Number: None

PATIENT
  Sex: Male
  Weight: 80 kg

DRUGS (1)
  1. CYTARABINE [Suspect]
     Dosage: 35400 MG
     Dates: end: 20070429

REACTIONS (4)
  - DYSPNOEA EXERTIONAL [None]
  - HAEMATOCRIT DECREASED [None]
  - HAEMOGLOBIN DECREASED [None]
  - PALPITATIONS [None]
